FAERS Safety Report 6817551-2 (Version None)
Quarter: 2010Q3

REPORT INFORMATION
  Report Type: 
  Country: None (occurrence: None)
  Receive Date: 20100706
  Receipt Date: 20100625
  Transmission Date: 20110219
  Serious: Yes (Other)
  Sender: FDA-Public Use
  Company Number: GB-EISAI INC.-E3810-03813-SPO-GB

PATIENT
  Age: 66 Year
  Sex: Female
  Weight: 65 kg

DRUGS (7)
  1. PARIET (RABEPRAZOLE) [Suspect]
     Indication: HIATUS HERNIA
     Route: 048
     Dates: start: 20090101, end: 20100301
  2. OMEPRAZOLE [Suspect]
     Dosage: UNKNOWN
     Route: 048
     Dates: end: 20090101
  3. ALFACALCIDOL [Concomitant]
     Route: 048
  4. ATENOLOL [Concomitant]
     Indication: HYPERTENSION
     Route: 048
  5. CALCICHEW [Concomitant]
     Route: 048
  6. PREMARIN [Concomitant]
     Route: 048
     Dates: end: 20090901
  7. MAGNESIUM GLYCEROPHOSPHATE [Concomitant]

REACTIONS (1)
  - HYPOMAGNESAEMIA [None]
